FAERS Safety Report 7220631-3 (Version None)
Quarter: 2011Q1

REPORT INFORMATION
  Report Type: 
  Country: None (occurrence: None)
  Receive Date: 20110111
  Receipt Date: 20110105
  Transmission Date: 20110831
  Serious: Yes (Death)
  Sender: FDA-Public Use
  Company Number: GB-PFIZER INC-2011004396

PATIENT
  Age: 25 Year
  Sex: Male

DRUGS (18)
  1. CLOFAZIMINE [Concomitant]
  2. LINEZOLID [Concomitant]
     Indication: TUBERCULOSIS
  3. PROTHIONAMIDE [Concomitant]
     Indication: TUBERCULOSIS
     Route: 042
  4. ETHAMBUTOL [Concomitant]
     Indication: ANTIBIOTIC PROPHYLAXIS
  5. TRUVADA [Concomitant]
     Indication: HIV INFECTION
  6. RITONAVIR [Suspect]
     Indication: HIV INFECTION
  7. PYRAZINAMIDE [Concomitant]
     Indication: TUBERCULOSIS
     Route: 042
  8. VALGANCICLOVIR [Concomitant]
  9. AMIKACIN [Concomitant]
     Indication: TUBERCULOSIS
     Route: 042
  10. DARUNAVIR [Suspect]
     Indication: HIV INFECTION
  11. ETHAMBUTOL [Concomitant]
     Indication: TUBERCULOSIS
     Route: 042
  12. FLUCONAZOLE [Suspect]
     Indication: ORAL CANDIDIASIS
  13. EFAVIRENZ [Concomitant]
     Indication: HIV INFECTION
  14. HEPARIN [Concomitant]
  15. PYRAZINAMIDE [Concomitant]
     Indication: ANTIBIOTIC PROPHYLAXIS
  16. MOXIFLOXACIN [Suspect]
     Indication: TUBERCULOSIS
  17. CYCLOSERINE [Concomitant]
     Indication: TUBERCULOSIS
  18. ONDANSETRON [Suspect]

REACTIONS (2)
  - ARRHYTHMIA [None]
  - SUDDEN DEATH [None]
